FAERS Safety Report 20510522 (Version 1)
Quarter: 2022Q1

REPORT INFORMATION
  Report Type: Spontaneous
  Country: CH (occurrence: None)
  Receive Date: 20220224
  Receipt Date: 20220224
  Transmission Date: 20220423
  Serious: No
  Sender: FDA-Public Use
  Company Number: CH-ROCHE-3027696

PATIENT
  Age: 58 Year
  Sex: Female
  Weight: 59 kg

DRUGS (5)
  1. OCREVUS [Suspect]
     Active Substance: OCRELIZUMAB
     Indication: Relapsing-remitting multiple sclerosis
     Dosage: 27/MAR/2018
     Route: 042
     Dates: start: 20180313
  2. OCREVUS [Suspect]
     Active Substance: OCRELIZUMAB
     Dosage: 18/MAR/2019, 10/SEP/2019, 09/JUN/2020
     Route: 042
     Dates: start: 20180911
  3. COVERAM [Concomitant]
     Active Substance: AMLODIPINE\PERINDOPRIL
     Indication: Hypertension
     Dosage: 10/5/2.5MG
  4. SOTROVIMAB [Concomitant]
     Active Substance: SOTROVIMAB
     Route: 042
  5. CODEINE PHOSPHATE\GUAIFENESIN [Concomitant]
     Active Substance: CODEINE PHOSPHATE\GUAIFENESIN

REACTIONS (1)
  - COVID-19 [Recovered/Resolved]

NARRATIVE: CASE EVENT DATE: 20220116
